FAERS Safety Report 8286225-6 (Version None)
Quarter: 2012Q2

REPORT INFORMATION
  Report Type: 
  Country: None (occurrence: None)
  Receive Date: 20120416
  Receipt Date: 20120405
  Transmission Date: 20120825
  Serious: No
  Sender: FDA-Public Use
  Company Number: US-PFIZER INC-2012090440

PATIENT
  Sex: Male
  Weight: 87.075 kg

DRUGS (4)
  1. FLECTOR [Suspect]
     Indication: PAIN
     Dosage: UNK
     Dates: start: 20120314, end: 20120403
  2. CORTISONE ACETATE [Suspect]
     Indication: PAIN
     Dosage: UNK
     Dates: start: 20100101, end: 20110101
  3. FLECTOR [Suspect]
     Indication: SWELLING
  4. CORTISONE ACETATE [Suspect]
     Indication: SWELLING

REACTIONS (3)
  - BURNING SENSATION [None]
  - DRUG INEFFECTIVE [None]
  - APPLICATION SITE REACTION [None]
